FAERS Safety Report 8488582-4 (Version None)
Quarter: 2012Q2

REPORT INFORMATION
  Report Type: 
  Country: None (occurrence: None)
  Receive Date: 20120626
  Receipt Date: 20120611
  Transmission Date: 20120825
  Serious: Yes (Hospitalization, Other)
  Sender: FDA-Public Use
  Company Number: 2011MA007909

PATIENT
  Sex: Female

DRUGS (16)
  1. LEVAQUIN [Concomitant]
  2. OMEPRAZOLE [Concomitant]
  3. CLARITIN [Concomitant]
  4. LANTUS [Concomitant]
  5. ARICEPT [Concomitant]
  6. LENTIS [Concomitant]
  7. METOPROLOL SUCCINATE [Concomitant]
  8. SCRALFATE [Concomitant]
  9. CLONIDINE [Concomitant]
  10. ISOSORBIDE [Concomitant]
  11. NOVOLOG [Concomitant]
  12. ACETAMINOPHEN [Concomitant]
  13. METOCLOPRAMIDE [Suspect]
     Dosage: AC + HS; PO
     Route: 048
     Dates: start: 20080701, end: 20100601
  14. AMLODIPINE [Concomitant]
  15. HYOSCYAMINE [Concomitant]
  16. REMERON [Concomitant]

REACTIONS (44)
  - RENAL FAILURE ACUTE [None]
  - DIARRHOEA [None]
  - DYSURIA [None]
  - ECONOMIC PROBLEM [None]
  - HYPERTENSION [None]
  - INTRACARDIAC THROMBUS [None]
  - MITRAL VALVE CALCIFICATION [None]
  - NAUSEA [None]
  - IMPAIRED DRIVING ABILITY [None]
  - TARDIVE DYSKINESIA [None]
  - TRICUSPID VALVE INCOMPETENCE [None]
  - INTRACARDIAC MASS [None]
  - TREMOR [None]
  - MITRAL VALVE INCOMPETENCE [None]
  - NASAL CONGESTION [None]
  - PHRENIC NERVE PARALYSIS [None]
  - PARKINSONISM [None]
  - FATIGUE [None]
  - ISCHAEMIA [None]
  - MIDDLE EAR EFFUSION [None]
  - ATRIAL HYPERTROPHY [None]
  - CORONARY ARTERY STENOSIS [None]
  - DYSTONIA [None]
  - PULMONARY HYPERTENSION [None]
  - DEMENTIA [None]
  - HYPOCHLORAEMIA [None]
  - CARDIAC ANEURYSM [None]
  - EXTRAPYRAMIDAL DISORDER [None]
  - MOVEMENT DISORDER [None]
  - DEPRESSION [None]
  - COGNITIVE DISORDER [None]
  - METABOLIC ALKALOSIS [None]
  - DECREASED APPETITE [None]
  - AORTIC VALVE CALCIFICATION [None]
  - DISTURBANCE IN SOCIAL BEHAVIOUR [None]
  - ANGINA PECTORIS [None]
  - STARING [None]
  - KIDNEY INFECTION [None]
  - POLLAKIURIA [None]
  - DIABETES MELLITUS INADEQUATE CONTROL [None]
  - FEELING COLD [None]
  - SCAB [None]
  - VOMITING [None]
  - ELECTROCARDIOGRAM T WAVE ABNORMAL [None]
